FAERS Safety Report 5172368-2 (Version None)
Quarter: 2006Q4

REPORT INFORMATION
  Report Type: 
  Country: None (occurrence: None)
  Receive Date: 20061213
  Receipt Date: 20060726
  Transmission Date: 20070319
  Serious: Yes (Life-Threatening, Hospitalization)
  Sender: FDA-Public Use
  Company Number: CA-MERCK-0607CAN00139

PATIENT
  Age: 44 Year
  Sex: Male

DRUGS (2)
  1. COZAAR [Suspect]
     Indication: HYPERTENSION
     Route: 048
     Dates: start: 20060504, end: 20060601
  2. COZAAR [Suspect]
     Route: 048
     Dates: start: 20060601

REACTIONS (3)
  - CARDIOMYOPATHY [None]
  - CHEST DISCOMFORT [None]
  - COUGH [None]
